FAERS Safety Report 4529747-3 (Version None)
Quarter: 2004Q4

REPORT INFORMATION
  Report Type: 
  Country: None (occurrence: None)
  Receive Date: 20041130
  Receipt Date: 20040809
  Transmission Date: 20050328
  Serious: No
  Sender: FDA-Public Use
  Company Number: WAES 0407USA01916

PATIENT
  Age: 79 Year
  Sex: Male
  Weight: 68.9467 kg

DRUGS (4)
  1. ZETIA [Suspect]
     Dosage: PO
     Route: 048
     Dates: start: 20031101, end: 20031201
  2. COZAAR [Concomitant]
  3. ECOTRIN [Concomitant]
  4. PRAVACHOL [Concomitant]

REACTIONS (2)
  - DIZZINESS [None]
  - VERTIGO [None]
